FAERS Safety Report 12691329 (Version 2)
Quarter: 2016Q3

REPORT INFORMATION
  Report Type: Report from Study
  Country: CA (occurrence: CA)
  Receive Date: 20160826
  Receipt Date: 20160928
  Transmission Date: 20161109
  Serious: Yes (Other)
  Sender: FDA-Public Use
  Company Number: CA-TAKEDA-2016TUS014935

PATIENT
  Age: 51 Year
  Sex: Male

DRUGS (3)
  1. REACTIN                            /00372302/ [Concomitant]
     Indication: SEASONAL ALLERGY
     Dosage: UNK, QD
  2. TECTA [Concomitant]
     Active Substance: PANTOPRAZOLE MAGNESIUM
     Indication: DYSPEPSIA
     Dosage: 40 MG, QD
     Dates: start: 2015
  3. VEDOLIZUMAB [Suspect]
     Active Substance: VEDOLIZUMAB
     Indication: CROHN^S DISEASE
     Dosage: 300 MG, Q4WEEKS
     Route: 042
     Dates: start: 20160817

REACTIONS (8)
  - Speech disorder [Unknown]
  - Burning sensation [Unknown]
  - Sensory disturbance [Unknown]
  - Paraesthesia [Unknown]
  - Dyskinesia [Unknown]
  - Hemiparesis [Unknown]
  - Diplopia [Unknown]
  - Off label use [Unknown]

NARRATIVE: CASE EVENT DATE: 201606
